FAERS Safety Report 17979969 (Version 1)
Quarter: 2020Q3

REPORT INFORMATION
  Report Type: Spontaneous
  Country: IT (occurrence: IT)
  Receive Date: 20200703
  Receipt Date: 20200703
  Transmission Date: 20201103
  Serious: Yes (Other)
  Sender: FDA-Public Use
  Company Number: IT-VIIV HEALTHCARE LIMITED-IT2020EME114264

PATIENT

DRUGS (1)
  1. TIVICAY [Suspect]
     Active Substance: DOLUTEGRAVIR SODIUM
     Indication: HIV INFECTION
     Dosage: UNK
     Dates: start: 201509, end: 201604

REACTIONS (11)
  - Delirium [Unknown]
  - Insomnia [Recovered/Resolved]
  - Malaise [Unknown]
  - Thinking abnormal [Recovered/Resolved]
  - Psychomotor hyperactivity [Unknown]
  - Anxiety [Recovered/Resolved]
  - Illness anxiety disorder [Unknown]
  - Depression [Unknown]
  - Confusional state [Unknown]
  - Panic reaction [Unknown]
  - Obsessive thoughts [Recovered/Resolved]

NARRATIVE: CASE EVENT DATE: 201509
